FAERS Safety Report 4790206-4 (Version None)
Quarter: 2005Q4

REPORT INFORMATION
  Report Type: 
  Country: None (occurrence: None)
  Receive Date: 20051006
  Receipt Date: 20050926
  Transmission Date: 20060501
  Serious: Yes (Other)
  Sender: FDA-Public Use
  Company Number: US-ROCHE-419249

PATIENT
  Sex: Male

DRUGS (4)
  1. NAPROSYN [Suspect]
     Indication: PAIN
     Route: 065
  2. CIPRO [Interacting]
     Dosage: DOSE REPORTED AS ^HIGH DOSE^.
     Route: 042
  3. CIPRO [Interacting]
     Dosage: DOSE REPORTED AS ^HIGH DOSE^.
     Route: 048
  4. CIPRO [Interacting]
     Route: 048

REACTIONS (6)
  - ANXIETY [None]
  - DEPRESSION [None]
  - DRUG INTERACTION [None]
  - PARAESTHESIA [None]
  - SLEEP DISORDER [None]
  - SUICIDAL IDEATION [None]
